FAERS Safety Report 4736173-0 (Version None)
Quarter: 2005Q3

REPORT INFORMATION
  Report Type: 
  Country: None (occurrence: None)
  Receive Date: 20050806
  Receipt Date: 20050704
  Transmission Date: 20060218
  Serious: Yes (Hospitalization)
  Sender: FDA-Public Use
  Company Number: PHBS2005ES09670

PATIENT
  Age: 78 Year
  Sex: Male

DRUGS (3)
  1. CARBAMAZEPINE [Suspect]
     Indication: ESSENTIAL TREMOR
     Dosage: 200 MG, Q12H
     Route: 065
  2. FLUTICASONE W/SALMETEROL [Concomitant]
     Dosage: 50 TO 500 UG/Q12H
     Route: 065
  3. TIOTROPIUM BROMIDE [Concomitant]
     Dosage: 18 UG/DAY
     Route: 065

REACTIONS (16)
  - ASTHENIA [None]
  - BLOOD OSMOLARITY DECREASED [None]
  - BLOOD SODIUM DECREASED [None]
  - CHRONIC RESPIRATORY FAILURE [None]
  - CONDITION AGGRAVATED [None]
  - HYPONATRAEMIA [None]
  - HYPOPHONESIS [None]
  - INAPPROPRIATE ANTIDIURETIC HORMONE SECRETION [None]
  - LUNG CREPITATION [None]
  - NAUSEA [None]
  - PITTING OEDEMA [None]
  - PROLONGED EXPIRATION [None]
  - RESPIRATORY FAILURE [None]
  - RESPIRATORY TRACT INFECTION [None]
  - TACHYPNOEA [None]
  - VOMITING [None]
